FAERS Safety Report 5009380-X (Version None)
Quarter: 2006Q2

REPORT INFORMATION
  Report Type: 
  Country: None (occurrence: None)
  Receive Date: 20060524
  Receipt Date: 20060519
  Transmission Date: 20061013
  Serious: Yes (Death, Hospitalization)
  Sender: FDA-Public Use
  Company Number: ES-JNJFOC-20060504195

PATIENT
  Age: 71 Year
  Sex: Female

DRUGS (7)
  1. TAVANIC [Suspect]
     Route: 048
     Dates: start: 20060227, end: 20060302
  2. CIPROFLOXACIN [Suspect]
     Indication: DRUG USE FOR UNKNOWN INDICATION
     Route: 042
     Dates: start: 20060301, end: 20060301
  3. FLUMIL [Concomitant]
     Route: 048
     Dates: start: 20060227, end: 20060301
  4. FLUTICASONE PROPIONATE [Concomitant]
     Route: 055
     Dates: start: 20060227, end: 20060301
  5. SALMETEROL XINAFOATE [Concomitant]
     Route: 055
     Dates: start: 20060227, end: 20060301
  6. SPIRIVA [Concomitant]
     Route: 055
     Dates: start: 20060227, end: 20060301
  7. ALLOPURINOL [Concomitant]
     Route: 065

REACTIONS (2)
  - MULTI-ORGAN FAILURE [None]
  - TOXIC EPIDERMAL NECROLYSIS [None]
